FAERS Safety Report 13651301 (Version 2)
Quarter: 2019Q1

REPORT INFORMATION
  Report Type: Spontaneous
  Country: US (occurrence: US)
  Receive Date: 20170614
  Receipt Date: 20190320
  Transmission Date: 20190417
  Serious: No
  Sender: FDA-Public Use
  Company Number: US-PFIZER INC-2017255812

PATIENT
  Age: 47 Year
  Sex: Female

DRUGS (1)
  1. LEVOFLOXACIN. [Suspect]
     Active Substance: LEVOFLOXACIN
     Dosage: 750 MG, UNK

REACTIONS (4)
  - Drug hypersensitivity [Unknown]
  - Pruritus [Unknown]
  - Rash [Unknown]
  - Lacrimation increased [Unknown]
